FAERS Safety Report 15681807 (Version 2)
Quarter: 2018Q4

REPORT INFORMATION
  Report Type: Spontaneous
  Country: US (occurrence: US)
  Receive Date: 20181203
  Receipt Date: 20181211
  Transmission Date: 20190205
  Serious: Yes (Other)
  Sender: FDA-Public Use
  Company Number: US-AKORN PHARMACEUTICALS-2018AKN01865

PATIENT
  Age: 16 Year
  Sex: Male
  Weight: 54.42 kg

DRUGS (1)
  1. MYORISAN [Suspect]
     Active Substance: ISOTRETINOIN
     Indication: ACNE
     Dosage: 30 MG, 1X/DAY
     Route: 048
     Dates: start: 20181008, end: 20181119

REACTIONS (3)
  - Off label use [Recovered/Resolved]
  - Abnormal behaviour [Unknown]
  - Anger [Unknown]

NARRATIVE: CASE EVENT DATE: 2018
